FAERS Safety Report 6567174-8 (Version None)
Quarter: 2010Q1

REPORT INFORMATION
  Report Type: 
  Country: None (occurrence: None)
  Receive Date: 20100202
  Receipt Date: 20091111
  Transmission Date: 20100710
  Serious: Yes (Other)
  Sender: FDA-Public Use
  Company Number: CHPA2009US20841

PATIENT
  Age: 76 Year
  Sex: Female
  Weight: 45.351 kg

DRUGS (4)
  1. BENEFIBER SUGAR FREE (NCH) [Suspect]
     Indication: NUTRITIONAL SUPPORT
     Dosage: 2 DF, BID
     Route: 048
  2. QVAR 40 [Concomitant]
     Indication: ASTHMA
     Dosage: UNK
  3. NASACORT AQ [Concomitant]
     Indication: ASTHMA
     Dosage: UNK
  4. CITRACAL [Concomitant]
     Indication: MYALGIA
     Dosage: UNK

REACTIONS (7)
  - EAR PAIN [None]
  - HEADACHE [None]
  - NAUSEA [None]
  - SENSITIVITY OF TEETH [None]
  - TOOTH INJURY [None]
  - TOOTHACHE [None]
  - VERTIGO [None]
